FAERS Safety Report 6211059-3 (Version None)
Quarter: 2009Q2

REPORT INFORMATION
  Report Type: 
  Country: None (occurrence: None)
  Receive Date: 20090528
  Receipt Date: 20090515
  Transmission Date: 20091009
  Serious: Yes (Hospitalization)
  Sender: FDA-Public Use
  Company Number: 2008-181666-NL

PATIENT
  Sex: Female
  Weight: 101.6 kg

DRUGS (1)
  1. NUVARING [Suspect]
     Dates: start: 20051201, end: 20071115

REACTIONS (3)
  - DEEP VEIN THROMBOSIS [None]
  - HAEMORRHOIDS [None]
  - IRRITABLE BOWEL SYNDROME [None]
